FAERS Safety Report 18688682 (Version 1)
Quarter: 2020Q4

REPORT INFORMATION
  Report Type: Report from Study
  Country: CA (occurrence: CA)
  Receive Date: 20201231
  Receipt Date: 20201231
  Transmission Date: 20210114
  Serious: No
  Sender: FDA-Public Use
  Company Number: CA-JNJFOC-20201247233

PATIENT
  Age: 7 Decade
  Sex: Female

DRUGS (3)
  1. STELARA [Suspect]
     Active Substance: USTEKINUMAB
     Indication: CROHN^S DISEASE
     Route: 058
  2. OCALIVA [Suspect]
     Active Substance: OBETICHOLIC ACID
     Indication: LIVER DISORDER
     Route: 065
     Dates: start: 20200923
  3. STELARA [Suspect]
     Active Substance: USTEKINUMAB

REACTIONS (2)
  - Liver disorder [Unknown]
  - Constipation [Not Recovered/Not Resolved]

NARRATIVE: CASE EVENT DATE: 2020
